FAERS Safety Report 20327936 (Version 1)
Quarter: 2022Q1

REPORT INFORMATION
  Report Type: Spontaneous
  Country: US (occurrence: None)
  Receive Date: 20220111
  Receipt Date: 20220111
  Transmission Date: 20220424
  Serious: Yes (Other)
  Sender: FDA-Public Use
  Company Number: None

PATIENT
  Age: 66 Year
  Sex: Female
  Weight: 56.25 kg

DRUGS (2)
  1. PRIVIGEN [Suspect]
     Active Substance: HUMAN IMMUNOGLOBULIN G
     Indication: Polyneuropathy
     Route: 041
     Dates: start: 20220110, end: 20220110
  2. PRIVIGEN [Concomitant]
     Active Substance: HUMAN IMMUNOGLOBULIN G
     Dates: start: 20220110, end: 20220110

REACTIONS (3)
  - Recalled product administered [None]
  - Throat tightness [None]
  - Product quality issue [None]

NARRATIVE: CASE EVENT DATE: 20220110
